FAERS Safety Report 4931131-5 (Version None)
Quarter: 2006Q1

REPORT INFORMATION
  Report Type: 
  Country: None (occurrence: None)
  Receive Date: 20060302
  Receipt Date: 20050930
  Transmission Date: 20060701
  Serious: Yes (Death, Other)
  Sender: FDA-Public Use
  Company Number: PR-MERCK-0510USA00834

PATIENT
  Age: 60 Year
  Sex: Male
  Weight: 66 kg

DRUGS (4)
  1. VIOXX [Suspect]
     Indication: BACK PAIN
     Route: 048
     Dates: start: 20020101, end: 20030101
  2. VIOXX [Suspect]
     Route: 048
     Dates: start: 20020101, end: 20030101
  3. VIOXX [Suspect]
     Indication: ARTHRITIS
     Route: 048
     Dates: start: 20020101, end: 20030101
  4. VIOXX [Suspect]
     Route: 048
     Dates: start: 20020101, end: 20030101

REACTIONS (8)
  - CEREBROVASCULAR ACCIDENT [None]
  - CHEST PAIN [None]
  - COLONIC POLYP [None]
  - HAEMORRHOIDS [None]
  - HEADACHE [None]
  - HYPERTENSION [None]
  - ISCHAEMIC CARDIOMYOPATHY [None]
  - MYOCARDIAL INFARCTION [None]
